FAERS Safety Report 4957579-0 (Version None)
Quarter: 2006Q1

REPORT INFORMATION
  Report Type: 
  Country: None (occurrence: None)
  Receive Date: 20060324
  Receipt Date: 20060314
  Transmission Date: 20060701
  Serious: Yes (Hospitalization)
  Sender: FDA-Public Use
  Company Number: US200603004887

PATIENT
  Age: 42 Year
  Sex: Male

DRUGS (1)
  1. SYMBYAX (OLANZAPINE AND FLUOXETINE HYDROCHLORIDE) CAPSULE [Suspect]
     Dosage: D/F,
     Dates: start: 20060101, end: 20060201

REACTIONS (4)
  - AGGRESSION [None]
  - BODY TEMPERATURE INCREASED [None]
  - CONVULSION [None]
  - TETANUS [None]
